FAERS Safety Report 9153570 (Version 1)
Quarter: 2013Q1

REPORT INFORMATION
  Report Type: Spontaneous
  Country: FR (occurrence: None)
  Receive Date: 20130204
  Receipt Date: 20130204
  Transmission Date: 20140127
  Serious: Yes (Hospitalization)
  Sender: FDA-Public Use
  Company Number: 2013000007

PATIENT
  Age: 92 Year
  Sex: Male

DRUGS (6)
  1. ACEON (PERINDOPRIL ERBUMINE) [Suspect]
     Route: 048
  2. SERESTA [Suspect]
     Route: 048
  3. DEPAMIDE (VALPROMIDE) [Suspect]
     Route: 048
  4. RISPERDAL [Suspect]
     Route: 048
  5. HEMIGOXINE NATIVELLE (DIGOXIN) [Concomitant]
  6. PLAVIX (CLOPIDOGREL BISULFATE) [Concomitant]

REACTIONS (2)
  - Somnolence [None]
  - Fall [None]
